FAERS Safety Report 8610264 (Version 4)
Quarter: 2013Q4

REPORT INFORMATION
  Report Type: Spontaneous
  Country: BR (occurrence: BR)
  Receive Date: 20120612
  Receipt Date: 20131125
  Transmission Date: 20140711
  Serious: Yes (Other)
  Sender: FDA-Public Use
  Company Number: BR-AMGEN-BRASP2012034895

PATIENT
  Age: 48 Year
  Sex: Male
  Weight: 90 kg

DRUGS (6)
  1. ENBREL [Suspect]
     Indication: RHEUMATOID ARTHRITIS
     Dosage: 50 MG, QWK
     Route: 058
     Dates: start: 2011
  2. METHOTREXATE [Concomitant]
     Dosage: 1 APPLICATION FO 25MG PER WEEK
     Dates: start: 2003
  3. ARAVA [Concomitant]
     Dosage: 20 MG, 1X/DAY
  4. PREDNISONE [Concomitant]
     Dosage: 1 TABLET OF 5 MG, 1X/DAY
     Dates: start: 2003
  5. IBUPROFEN [Concomitant]
     Indication: PAIN
     Dosage: 1 TO 3 TABLETS OF 600MG IF FEELING PAIN
  6. FOLIC ACID [Concomitant]
     Dosage: 5 MG, 1X/DAY

REACTIONS (7)
  - Dyspnoea [Unknown]
  - Emphysema [Unknown]
  - Throat irritation [Not Recovered/Not Resolved]
  - Vocal cord disorder [Not Recovered/Not Resolved]
  - Epistaxis [Not Recovered/Not Resolved]
  - Nasal discomfort [Not Recovered/Not Resolved]
  - Chest pain [Unknown]
